FAERS Safety Report 24574502 (Version 1)
Quarter: 2024Q4

REPORT INFORMATION
  Report Type: Spontaneous
  Country: IN (occurrence: IN)
  Receive Date: 20241104
  Receipt Date: 20241104
  Transmission Date: 20250115
  Serious: Yes (Life-Threatening, Hospitalization)
  Sender: ACCORD
  Company Number: IN-MLMSERVICE-20241017-PI229010-00101-2

PATIENT
  Age: 43 Year
  Sex: Male

DRUGS (1)
  1. CISPLATIN [Suspect]
     Active Substance: CISPLATIN
     Indication: Laryngeal squamous cell carcinoma
     Dosage: WEEKLY USING INJECTION CISPLATIN 40 MG/M2

REACTIONS (2)
  - Aspergillus infection [Recovering/Resolving]
  - Candida infection [Recovering/Resolving]
